FAERS Safety Report 11225486 (Version 1)
Quarter: 2015Q2

REPORT INFORMATION
  Report Type: Spontaneous
  Country: US (occurrence: US)
  Receive Date: 20150629
  Receipt Date: 20150629
  Transmission Date: 20150821
  Serious: Yes (Other)
  Sender: FDA-Public Use
  Company Number: US-BAYER-2015-362252

PATIENT
  Age: 19 Year
  Sex: Female

DRUGS (1)
  1. SKYLA [Suspect]
     Active Substance: LEVONORGESTREL
     Indication: CONTRACEPTION
     Dosage: 14 MCG/24HR, CONT
     Route: 015
     Dates: start: 201505

REACTIONS (9)
  - Nausea [None]
  - Loss of consciousness [None]
  - Heart rate increased [None]
  - Palpitations [None]
  - Dyspnoea [None]
  - Dizziness [None]
  - Cyanosis [None]
  - Feeling abnormal [None]
  - Dehydration [Recovered/Resolved]

NARRATIVE: CASE EVENT DATE: 201506
